FAERS Safety Report 17886947 (Version 4)
Quarter: 2025Q4

REPORT INFORMATION
  Report Type: Report from Study
  Country: CA (occurrence: CA)
  Receive Date: 20200611
  Receipt Date: 20251028
  Transmission Date: 20260117
  Serious: Yes (Other)
  Sender: ABBVIE
  Company Number: CA-ABBVIE-20K-028-3412947-00

PATIENT
  Age: 63 Year
  Sex: Male
  Weight: 85 kg

DRUGS (1)
  1. RINVOQ [Suspect]
     Active Substance: UPADACITINIB
     Indication: Rheumatoid arthritis
     Route: 048
     Dates: start: 20200318

REACTIONS (11)
  - Musculoskeletal chest pain [Recovered/Resolved]
  - Decreased appetite [Not Recovered/Not Resolved]
  - Diarrhoea [Recovering/Resolving]
  - Weight decreased [Not Recovered/Not Resolved]
  - Pain [Unknown]
  - Dyspepsia [Unknown]
  - Inflammation [Unknown]
  - Sleep apnoea syndrome [Unknown]
  - Rash [Unknown]
  - Myalgia [Unknown]
  - Middle insomnia [Unknown]

NARRATIVE: CASE EVENT DATE: 20200101
